FAERS Safety Report 7907087-X (Version None)
Quarter: 2011Q4

REPORT INFORMATION
  Report Type: 
  Country: None (occurrence: None)
  Receive Date: 20111110
  Receipt Date: 20110127
  Transmission Date: 20120403
  Serious: No
  Sender: FDA-Public Use
  Company Number: US-ASTRAZENECA-2011SE04738

PATIENT
  Age: 46 Year
  Sex: Female

DRUGS (7)
  1. ZYRTEC [Concomitant]
  2. FLONASE [Concomitant]
  3. ALLEGRA [Interacting]
     Indication: HYPERSENSITIVITY
     Route: 048
  4. SYNTHROID [Interacting]
     Route: 065
  5. NORVASC [Interacting]
     Route: 065
  6. CLARITIN [Concomitant]
  7. LISINOPRIL [Suspect]
     Route: 048

REACTIONS (3)
  - DRUG INTERACTION [None]
  - DRY MOUTH [None]
  - DRUG INEFFECTIVE [None]
